FAERS Safety Report 6904269-0 (Version None)
Quarter: 2010Q3

REPORT INFORMATION
  Report Type: 
  Country: None (occurrence: None)
  Receive Date: 20100804
  Receipt Date: 20090414
  Transmission Date: 20110219
  Serious: No
  Sender: FDA-Public Use
  Company Number: US-PFIZER INC-2009198745

PATIENT
  Age: 22 Year
  Sex: Female
  Weight: 89.342 kg

DRUGS (7)
  1. LYRICA [Suspect]
     Indication: DIABETIC NEUROPATHY
     Dosage: 200 MG, 3X/DAY
     Route: 048
     Dates: start: 20080313
  2. HUMIRA [Suspect]
     Indication: PSORIASIS
     Dosage: 40 MG, 1 IN 2 WEEKS
     Route: 065
     Dates: start: 20090126, end: 20090201
  3. HUMIRA [Suspect]
     Indication: PSORIATIC ARTHROPATHY
  4. CYMBALTA [Suspect]
     Indication: DIABETIC NEUROPATHY
     Dosage: 60 MG, 1X/DAY
     Route: 048
     Dates: start: 20080308
  5. HYDROXYZINE [Concomitant]
     Indication: PSORIASIS
     Dosage: 25 MG, 1X/DAY AS NEEDED
     Route: 048
  6. TRIAMCINOLONE [Concomitant]
     Indication: PSORIASIS
     Dosage: 0.1 CREAM AS REQUIRED
     Route: 061
  7. CALCIPOTRIOL [Concomitant]
     Indication: PSORIASIS
     Dosage: UNK
     Route: 061

REACTIONS (3)
  - DIABETIC NEUROPATHY [None]
  - NEURALGIA [None]
  - PAIN [None]
